FAERS Safety Report 9706780 (Version 1)
Quarter: 2013Q4

REPORT INFORMATION
  Report Type: Report from Study
  Country: DE (occurrence: DE)
  Receive Date: 20131125
  Receipt Date: 20131125
  Transmission Date: 20140711
  Serious: Yes (Hospitalization)
  Sender: FDA-Public Use
  Company Number: PHHO2013DE015106

PATIENT
  Sex: 0

DRUGS (6)
  1. SOM230 [Suspect]
     Indication: THYMOMA
     Dosage: 60 MG, UNK
     Route: 030
     Dates: start: 20130628
  2. PREDNISONE [Suspect]
     Indication: THYMOMA
     Dosage: 20 MG, UNK
     Route: 048
     Dates: start: 20130722, end: 20131103
  3. PREDNISONE [Suspect]
     Indication: MYASTHENIA GRAVIS
     Route: 048
     Dates: start: 20131103
  4. PANTOPRAZOLE [Concomitant]
     Indication: PROPHYLAXIS
     Dosage: 20 MG, UNK
     Route: 048
     Dates: start: 20130722
  5. POTASSIUM [Concomitant]
     Indication: MYASTHENIA GRAVIS
     Dosage: 3X/D
     Route: 048
     Dates: start: 20130618
  6. PYRIDOSTIGMINE [Concomitant]
     Indication: MYASTHENIA GRAVIS
     Dosage: 60 MG, 5QD
     Route: 048
     Dates: start: 20130628

REACTIONS (1)
  - Hyperglycaemia [Recovering/Resolving]
